FAERS Safety Report 17794035 (Version 1)
Quarter: 2020Q2

REPORT INFORMATION
  Report Type: Spontaneous
  Country: SI (occurrence: SI)
  Receive Date: 20200515
  Receipt Date: 20200515
  Transmission Date: 20200714
  Serious: Yes (Death, Other)
  Sender: FDA-Public Use
  Company Number: SI-BAYER-2020-081532

PATIENT
  Age: 59 Year
  Sex: Male

DRUGS (4)
  1. STIVARGA [Suspect]
     Active Substance: REGORAFENIB
     Dosage: 120 MG DAILY
     Dates: start: 201708
  2. STIVARGA [Suspect]
     Active Substance: REGORAFENIB
     Dosage: 160 MG DAILY
     Dates: start: 201708
  3. FOLFIRI [Concomitant]
     Active Substance: FLUOROURACIL\IRINOTECAN\LEUCOVORIN
  4. TIPIRACIL HYDROCHLORIDE;TRIFLURIDINE [Concomitant]
     Active Substance: TIPIRACIL HYDROCHLORIDE\TRIFLURIDINE

REACTIONS (4)
  - Metastases to lung [None]
  - Metastases to pelvis [None]
  - Death [Fatal]
  - Metastases to liver [None]

NARRATIVE: CASE EVENT DATE: 201901
